FAERS Safety Report 7655022-4 (Version None)
Quarter: 2011Q3

REPORT INFORMATION
  Report Type: 
  Country: None (occurrence: None)
  Receive Date: 20110804
  Receipt Date: 20110721
  Transmission Date: 20111222
  Serious: Yes (Hospitalization)
  Sender: FDA-Public Use
  Company Number: US-UCBSA-036791

PATIENT
  Sex: Female

DRUGS (2)
  1. KEPPRA XR [Suspect]
     Route: 048
     Dates: start: 20110423
  2. DILANTIN [Suspect]
     Route: 048
     Dates: start: 20091201, end: 20110703

REACTIONS (5)
  - DIZZINESS [None]
  - ANTICONVULSANT DRUG LEVEL INCREASED [None]
  - TREMOR [None]
  - INAPPROPRIATE SCHEDULE OF DRUG ADMINISTRATION [None]
  - FALL [None]
